FAERS Safety Report 9804283 (Version 3)
Quarter: 2014Q1

REPORT INFORMATION
  Report Type: Spontaneous
  Country: US (occurrence: US)
  Receive Date: 20140108
  Receipt Date: 20140110
  Transmission Date: 20141002
  Serious: Yes (Hospitalization, Other)
  Sender: FDA-Public Use
  Company Number: US-PFIZER INC-2014001155

PATIENT
  Age: 19 Year
  Sex: Female

DRUGS (8)
  1. TETRACYCLINE HCL [Suspect]
     Indication: ACNE
     Dosage: 500 MG, 2X/DAY
     Route: 048
  2. CEFAZOLIN [Suspect]
     Indication: INFECTION PROPHYLAXIS
     Dosage: 1000 MG, CONTINUED EVERY 8 HOURS POSTOPERATIVELY, 4 DOSES
     Route: 042
  3. CEFAZOLIN [Suspect]
     Indication: ANTIBIOTIC PROPHYLAXIS
  4. CEPHALEXIN [Suspect]
     Dosage: 500 MG, 4X/DAY
     Route: 048
  5. METHYLPHENIDATE [Concomitant]
     Dosage: UNK
     Route: 065
  6. LAMOTRIGINE [Concomitant]
     Dosage: UNK
     Route: 065
  7. ARIPIPRAZOLE [Concomitant]
     Dosage: UNK
     Route: 065
  8. VALPROIC ACID [Concomitant]
     Dosage: UNK
     Route: 065

REACTIONS (1)
  - Clostridium difficile colitis [Recovered/Resolved]
